FAERS Safety Report 20775707 (Version 2)
Quarter: 2022Q2

REPORT INFORMATION
  Report Type: Spontaneous
  Country: US (occurrence: US)
  Receive Date: 20220502
  Receipt Date: 20220519
  Transmission Date: 20220721
  Serious: Yes (Other)
  Sender: FDA-Public Use
  Company Number: US-SUNOVION-2022SUN001377

PATIENT
  Sex: Male

DRUGS (4)
  1. LATUDA [Suspect]
     Active Substance: LURASIDONE HYDROCHLORIDE
     Indication: Bipolar disorder
     Dosage: UNK
     Route: 048
  2. VRAYLAR [Suspect]
     Active Substance: CARIPRAZINE
     Dosage: UNK
     Route: 065
  3. LAMICTAL [Suspect]
     Active Substance: LAMOTRIGINE
     Dosage: UNK
     Route: 065
  4. CAPLYTA [Suspect]
     Active Substance: LUMATEPERONE
     Dosage: UNK
     Route: 065

REACTIONS (12)
  - Facial paralysis [Recovered/Resolved]
  - Bruxism [Unknown]
  - Disorientation [Unknown]
  - Feeling abnormal [Unknown]
  - Feeling drunk [Unknown]
  - Sexual dysfunction [Unknown]
  - Tinnitus [Not Recovered/Not Resolved]
  - Dizziness [Unknown]
  - Drooling [Recovered/Resolved]
  - Extrapyramidal disorder [Recovered/Resolved]
  - Fatigue [Unknown]
  - Nausea [Unknown]
